FAERS Safety Report 5342549-3 (Version None)
Quarter: 2007Q2

REPORT INFORMATION
  Report Type: 
  Country: None (occurrence: None)
  Receive Date: 20070601
  Receipt Date: 20070525
  Transmission Date: 20071010
  Serious: Yes (Hospitalization, Other)
  Sender: FDA-Public Use
  Company Number: US-ABBOTT-06P-163-0352576-00

PATIENT
  Sex: Female
  Weight: 92.7 kg

DRUGS (3)
  1. HUMIRA [Suspect]
     Indication: RHEUMATOID ARTHRITIS
     Route: 058
     Dates: start: 20050101, end: 20070305
  2. HUMIRA [Suspect]
     Route: 058
     Dates: start: 20070416
  3. METHOTREXATE SODIUM [Concomitant]
     Indication: RHEUMATOID ARTHRITIS
     Dosage: FRIDAY
     Route: 058

REACTIONS (5)
  - ARTHRALGIA [None]
  - BONE FRAGMENTATION [None]
  - DRUG INEFFECTIVE [None]
  - HERPES ZOSTER [None]
  - SINUSITIS [None]
